FAERS Safety Report 18448251 (Version 4)
Quarter: 2023Q1

REPORT INFORMATION
  Report Type: Spontaneous
  Country: PT (occurrence: PT)
  Receive Date: 20201031
  Receipt Date: 20230211
  Transmission Date: 20230417
  Serious: Yes (Hospitalization, Other)
  Sender: FDA-Public Use
  Company Number: PT-AUROBINDO-AUR-APL-2020-054637

PATIENT
  Age: 69 Year
  Sex: Female

DRUGS (7)
  1. PHENYTOIN [Suspect]
     Active Substance: PHENYTOIN
     Indication: Epilepsy
     Dosage: 100 MILLIGRAM, DAILY
     Route: 065
  2. VALPROATE [Suspect]
     Active Substance: VALPROIC ACID
     Indication: Epilepsy
     Dosage: 500 MILLIGRAM, DAILY
     Route: 065
  3. CLONAZEPAM [Concomitant]
     Active Substance: CLONAZEPAM
     Indication: Epilepsy
     Dosage: UNK
     Route: 065
  4. CLONAZEPAM [Concomitant]
     Active Substance: CLONAZEPAM
     Dosage: 0.5 MILLIGRAM, ONCE A DAY
     Route: 065
  5. LEVETIRACETAM [Concomitant]
     Active Substance: LEVETIRACETAM
     Indication: Epilepsy
     Dosage: UNK
     Route: 065
  6. LEVETIRACETAM [Concomitant]
     Active Substance: LEVETIRACETAM
     Dosage: 1500 MILLIGRAM, ONCE A DAY
     Route: 065
  7. CALCIUM GLUCONATE [Concomitant]
     Active Substance: CALCIUM GLUCONATE
     Indication: Product used for unknown indication
     Dosage: UNK
     Route: 065

REACTIONS (6)
  - Altered state of consciousness [Recovered/Resolved]
  - Hypocalcaemia [Recovered/Resolved]
  - Seizure [Recovered/Resolved]
  - Vitamin D deficiency [Unknown]
  - Blood parathyroid hormone increased [Unknown]
  - Urine calcium decreased [Unknown]
